FAERS Safety Report 7888847-0 (Version None)
Quarter: 2011Q4

REPORT INFORMATION
  Report Type: 
  Country: None (occurrence: None)
  Receive Date: 20111103
  Receipt Date: 20111021
  Transmission Date: 20120403
  Serious: Yes (Hospitalization)
  Sender: FDA-Public Use
  Company Number: US-BAYER-2011-076820

PATIENT
  Age: 27 Year
  Sex: Female
  Weight: 143 kg

DRUGS (9)
  1. SYNTHROID [Concomitant]
     Indication: THYROID HORMONE REPLACEMENT THERAPY
     Dosage: UNK
     Dates: start: 20040601
  2. ACETAMINOPHEN AND HYDROCODONE BITARTRATE [Concomitant]
     Dosage: UNK, 5-500 MG
     Dates: start: 20101221
  3. YAZ [Suspect]
     Indication: CONTRACEPTION
     Dosage: UNK
     Route: 048
     Dates: start: 20070201, end: 20110311
  4. ONDANSETRON [Concomitant]
     Dosage: 4 MG, UNK
     Dates: start: 20110204
  5. AMOXICILLIN [Concomitant]
     Indication: OTITIS MEDIA
     Dosage: 500 MG, UNK
     Dates: start: 20110205, end: 20110209
  6. ZOMIG [Concomitant]
     Dosage: UNK
     Dates: start: 20110131
  7. RELPAX [Concomitant]
     Dosage: UNK
     Dates: start: 20110131
  8. YAZ [Suspect]
     Indication: OVARIAN CYST
  9. TREXIMET [Concomitant]
     Dosage: UNK, 85 MG - 500 MG
     Dates: start: 20110204

REACTIONS (4)
  - INTRACRANIAL VENOUS SINUS THROMBOSIS [None]
  - INJURY [None]
  - JUGULAR VEIN THROMBOSIS [None]
  - INTRACRANIAL PRESSURE INCREASED [None]
